FAERS Safety Report 14341628 (Version 3)
Quarter: 2018Q1

REPORT INFORMATION
  Report Type: Spontaneous
  Country: FR (occurrence: FR)
  Receive Date: 20180102
  Receipt Date: 20180323
  Transmission Date: 20180509
  Serious: Yes (Life-Threatening, Other)
  Sender: FDA-Public Use
  Company Number: FR-UCBSA-2017051785

PATIENT
  Age: 88 Year
  Sex: Female
  Weight: 36 kg

DRUGS (1)
  1. VIMPAT [Suspect]
     Active Substance: LACOSAMIDE
     Indication: EPILEPSY
     Dosage: 2 DF DAILY
     Route: 048
     Dates: start: 20171129, end: 20171204

REACTIONS (3)
  - Atrioventricular block complete [Recovered/Resolved with Sequelae]
  - Mitral valve incompetence [Not Recovered/Not Resolved]
  - Tricuspid valve incompetence [Not Recovered/Not Resolved]

NARRATIVE: CASE EVENT DATE: 201712
